FAERS Safety Report 24434973 (Version 1)
Quarter: 2024Q4

REPORT INFORMATION
  Report Type: Spontaneous
  Country: CA (occurrence: CA)
  Receive Date: 20241014
  Receipt Date: 20241014
  Transmission Date: 20250114
  Serious: Yes (Death)
  Sender: SHIONOGI
  Company Number: CA-shionogi-202400001155

PATIENT
  Age: 46 Year
  Sex: Female

DRUGS (16)
  1. CEFIDEROCOL [Suspect]
     Active Substance: CEFIDEROCOL
     Indication: Treatment failure
     Dosage: 3 HOURS INFUSION
  2. CEFIDEROCOL [Suspect]
     Active Substance: CEFIDEROCOL
     Indication: Bacterial infection
  3. CEFIDEROCOL [Suspect]
     Active Substance: CEFIDEROCOL
     Indication: Klebsiella bacteraemia
  4. CEFIDEROCOL [Suspect]
     Active Substance: CEFIDEROCOL
     Indication: Stenotrophomonas infection
  5. CEFIDEROCOL [Suspect]
     Active Substance: CEFIDEROCOL
     Indication: Acinetobacter bacteraemia
  6. CEFIDEROCOL [Suspect]
     Active Substance: CEFIDEROCOL
     Indication: Klebsiella infection
  7. CEFTOBIPROLE [Suspect]
     Active Substance: CEFTOBIPROLE
     Indication: Stenotrophomonas infection
  8. CEFTOBIPROLE [Suspect]
     Active Substance: CEFTOBIPROLE
     Indication: Acinetobacter infection
  9. CEFTOBIPROLE [Suspect]
     Active Substance: CEFTOBIPROLE
     Indication: Klebsiella infection
  10. CEFTOBIPROLE [Suspect]
     Active Substance: CEFTOBIPROLE
     Indication: Klebsiella bacteraemia
  11. SULFAMETHOXAZOLE\TRIMETHOPRIM [Concomitant]
     Active Substance: SULFAMETHOXAZOLE\TRIMETHOPRIM
     Indication: Stenotrophomonas maltophilia pneumonia
     Route: 065
  12. TIGECYCLINE [Concomitant]
     Active Substance: TIGECYCLINE
     Indication: Drug resistance
     Route: 065
  13. TIGECYCLINE [Concomitant]
     Active Substance: TIGECYCLINE
     Indication: Septic shock
  14. TIGECYCLINE [Concomitant]
     Active Substance: TIGECYCLINE
     Indication: Lung assist device therapy
  15. COLISTIN [Concomitant]
     Active Substance: COLISTIN
     Indication: Drug resistance
     Route: 065
  16. COLISTIN [Concomitant]
     Active Substance: COLISTIN
     Indication: Stenotrophomonas infection

REACTIONS (1)
  - Death [Fatal]
